FAERS Safety Report 19821611 (Version 1)
Quarter: 2021Q3

REPORT INFORMATION
  Report Type: Spontaneous
  Country: US (occurrence: US)
  Receive Date: 20210913
  Receipt Date: 20210913
  Transmission Date: 20211014
  Serious: Yes (Other)
  Sender: FDA-Public Use
  Company Number: US-GLAXOSMITHKLINE-US2021GSK192285

PATIENT
  Sex: Male

DRUGS (4)
  1. RANITIDINE. [Suspect]
     Active Substance: RANITIDINE
     Indication: BURNING SENSATION
     Dosage: 75 MG, BID
     Route: 065
     Dates: start: 199001, end: 200201
  2. ZANTAC [Suspect]
     Active Substance: RANITIDINE HYDROCHLORIDE
     Indication: BURNING SENSATION
     Dosage: UNK, BID
     Route: 065
     Dates: start: 199001, end: 201201
  3. RANITIDINE. [Suspect]
     Active Substance: RANITIDINE
     Indication: BURNING SENSATION
     Dosage: 75 MG, BID
     Route: 065
     Dates: start: 199001, end: 200201
  4. ZANTAC [Suspect]
     Active Substance: RANITIDINE HYDROCHLORIDE
     Indication: BURNING SENSATION
     Dosage: UNK, BID
     Route: 065
     Dates: start: 199001, end: 201201

REACTIONS (1)
  - Lung neoplasm malignant [Unknown]
